FAERS Safety Report 8169257-8 (Version None)
Quarter: 2012Q1

REPORT INFORMATION
  Report Type: 
  Country: None (occurrence: None)
  Receive Date: 20120228
  Receipt Date: 20120222
  Transmission Date: 20120608
  Serious: Yes (Life-Threatening)
  Sender: FDA-Public Use
  Company Number: RU-ASTRAZENECA-2011SE76871

PATIENT
  Age: 52 Year
  Sex: Female

DRUGS (3)
  1. NAROPIN [Suspect]
     Indication: INFILTRATION ANAESTHESIA
     Route: 050
     Dates: start: 20111220
  2. KETOLAK [Concomitant]
  3. TRAMADOL HCL [Concomitant]

REACTIONS (4)
  - HYPOTENSION [None]
  - PALLOR [None]
  - CIRCULATORY COLLAPSE [None]
  - CYANOSIS [None]
